FAERS Safety Report 5538398-3 (Version None)
Quarter: 2007Q4

REPORT INFORMATION
  Report Type: 
  Country: None (occurrence: None)
  Receive Date: 20071205
  Receipt Date: 20071120
  Transmission Date: 20080405
  Serious: Yes (Life-Threatening, Other)
  Sender: FDA-Public Use
  Company Number: SPV1-2007-04737

PATIENT
  Age: 7 Year
  Sex: Male
  Weight: 26.3 kg

DRUGS (3)
  1. ADDERALL XR(AMPHETAMINE ASPARTATE, AMPHETAMINE SULFATE, DEXTROAMPHETAM [Suspect]
     Indication: ATTENTION DEFICIT/HYPERACTIVITY DISORDER
     Dosage: 10 MG, 1X/DAY; QD, ORAL; 20 MG, 1X/DAY: QD, ORAL; 30 MG, 1X/DAY: QD, ORAL
     Route: 048
     Dates: start: 20070201, end: 20070201
  2. ADDERALL XR(AMPHETAMINE ASPARTATE, AMPHETAMINE SULFATE, DEXTROAMPHETAM [Suspect]
     Indication: ATTENTION DEFICIT/HYPERACTIVITY DISORDER
     Dosage: 10 MG, 1X/DAY; QD, ORAL; 20 MG, 1X/DAY: QD, ORAL; 30 MG, 1X/DAY: QD, ORAL
     Route: 048
     Dates: start: 20070201, end: 20070201
  3. ADDERALL XR(AMPHETAMINE ASPARTATE, AMPHETAMINE SULFATE, DEXTROAMPHETAM [Suspect]
     Indication: ATTENTION DEFICIT/HYPERACTIVITY DISORDER
     Dosage: 10 MG, 1X/DAY; QD, ORAL; 20 MG, 1X/DAY: QD, ORAL; 30 MG, 1X/DAY: QD, ORAL
     Route: 048
     Dates: start: 20070309, end: 20070501

REACTIONS (8)
  - AGGRESSION [None]
  - ANOREXIA [None]
  - DRUG EFFECT INCREASED [None]
  - INTENTIONAL SELF-INJURY [None]
  - SELF ESTEEM DECREASED [None]
  - SUICIDAL BEHAVIOUR [None]
  - SUICIDAL IDEATION [None]
  - WEIGHT DECREASED [None]
